FAERS Safety Report 8146137-5 (Version None)
Quarter: 2012Q1

REPORT INFORMATION
  Report Type: 
  Country: None (occurrence: None)
  Receive Date: 20120217
  Receipt Date: 20120215
  Transmission Date: 20120608
  Serious: Yes (Other)
  Sender: FDA-Public Use
  Company Number: US-PFIZER INC-2012041393

PATIENT
  Sex: Female
  Weight: 72.6 kg

DRUGS (6)
  1. LYRICA [Suspect]
     Dosage: 200 MG, 2X/DAY
     Route: 048
     Dates: start: 20080101, end: 20100101
  2. LYRICA [Suspect]
     Dosage: UNK
     Route: 048
  3. LYRICA [Suspect]
     Indication: NERVE INJURY
     Dosage: 100 MG, 1X/DAY
     Route: 048
     Dates: start: 20050101, end: 20080101
  4. LYRICA [Suspect]
     Indication: FIBROMYALGIA
     Dosage: 50 MG, 1X/DAY
     Route: 048
     Dates: start: 20030101, end: 20050101
  5. LYRICA [Suspect]
     Dosage: 300 MG, 2X/DAY
     Route: 048
     Dates: start: 20100101
  6. PROTONIX [Concomitant]
     Indication: GASTROOESOPHAGEAL REFLUX DISEASE
     Dosage: UNK

REACTIONS (3)
  - APHAGIA [None]
  - PAIN [None]
  - VOMITING [None]
